FAERS Safety Report 20438432 (Version 1)
Quarter: 2022Q1

REPORT INFORMATION
  Report Type: Spontaneous
  Country: US (occurrence: US)
  Receive Date: 20220207
  Receipt Date: 20220207
  Transmission Date: 20220423
  Serious: No
  Sender: FDA-Public Use
  Company Number: US-BEH-2022141287

PATIENT
  Sex: Female

DRUGS (1)
  1. HIZENTRA [Suspect]
     Active Substance: HUMAN IMMUNOGLOBULIN G
     Indication: Illness
     Dosage: 26 GRAM, QW
     Route: 058

REACTIONS (4)
  - Cardiac disorder [Unknown]
  - Burning sensation [Unknown]
  - No adverse event [Unknown]
  - Off label use [Unknown]
